FAERS Safety Report 9287930 (Version 1)
Quarter: 2013Q2

REPORT INFORMATION
  Report Type: Spontaneous
  Country: GB (occurrence: GB)
  Receive Date: 20130514
  Receipt Date: 20130514
  Transmission Date: 20140414
  Serious: Yes (Hospitalization, Other)
  Sender: FDA-Public Use
  Company Number: GB-MYLANLABS-2013S1009467

PATIENT
  Age: 63 Year
  Sex: Female

DRUGS (1)
  1. OMEPRAZOLE [Suspect]
     Indication: PRODUCT USED FOR UNKNOWN INDICATION
     Route: 048

REACTIONS (11)
  - Decreased appetite [Unknown]
  - Bedridden [Unknown]
  - Burning sensation [Unknown]
  - Eye haemorrhage [Unknown]
  - Syncope [Unknown]
  - Alopecia [Unknown]
  - Pain [Unknown]
  - Photosensitivity reaction [Unknown]
  - Retinopathy [Unknown]
  - Paraesthesia [Unknown]
  - Weight decreased [Unknown]
